FAERS Safety Report 11706572 (Version 3)
Quarter: 2016Q1

REPORT INFORMATION
  Report Type: Report from Study
  Country: US (occurrence: US)
  Receive Date: 20151106
  Receipt Date: 20160120
  Transmission Date: 20160525
  Serious: Yes (Hospitalization)
  Sender: FDA-Public Use
  Company Number: US-JNJFOC-20151017915

PATIENT
  Age: 57 Year
  Sex: Male

DRUGS (7)
  1. ALBUTEROL HFA [Concomitant]
     Active Substance: ALBUTEROL SULFATE
     Indication: DYSPNOEA
     Dosage: 108 (90 BASE), MCG/ACT, INHALE 2 PUFFS EVERY 4 HOURS AS NEEDED
  2. IMBRUVICA [Suspect]
     Active Substance: IBRUTINIB
     Indication: CHRONIC LYMPHOCYTIC LEUKAEMIA
     Route: 048
     Dates: start: 20141201, end: 20150406
  3. FISH OIL OMEGA 3 [Concomitant]
  4. ZYLOPRIN [Concomitant]
     Route: 048
  5. IMBRUVICA [Suspect]
     Active Substance: IBRUTINIB
     Indication: CHRONIC LYMPHOCYTIC LEUKAEMIA
     Route: 048
     Dates: start: 20150723, end: 20150922
  6. PREDNISONE. [Concomitant]
     Active Substance: PREDNISONE
  7. LIDOCAINE W/PRILOCAINE [Concomitant]
     Dosage: 2.5-2.5% CREAM, APPLY TO PORT ONCE PER WEEK

REACTIONS (10)
  - Head injury [Unknown]
  - Pleural effusion [Unknown]
  - Neutropenia [Recovered/Resolved]
  - Syncope [Recovered/Resolved]
  - Epistaxis [Unknown]
  - Thrombocytopenia [Unknown]
  - Septic shock [Recovered/Resolved]
  - Subdural haematoma [Not Recovered/Not Resolved]
  - Klebsiella bacteraemia [Recovered/Resolved]
  - Drug ineffective [Unknown]

NARRATIVE: CASE EVENT DATE: 2015
